FAERS Safety Report 4806810-0 (Version None)
Quarter: 2005Q4

REPORT INFORMATION
  Report Type: 
  Country: None (occurrence: None)
  Receive Date: 20051019
  Receipt Date: 20051006
  Transmission Date: 20060501
  Serious: Yes (Hospitalization)
  Sender: FDA-Public Use
  Company Number: 2005132320

PATIENT
  Age: 28 Month
  Sex: Female
  Weight: 12 kg

DRUGS (9)
  1. HALCION [Suspect]
     Indication: ILL-DEFINED DISORDER
     Dosage: 0.25 MG, ORAL
     Route: 048
     Dates: start: 20050919, end: 20050921
  2. ROHYPNOL (FLUNITRAZEPAM) [Suspect]
     Indication: ILL-DEFINED DISORDER
     Dosage: ORAL
     Route: 048
     Dates: start: 20050919, end: 20050921
  3. DORAL [Suspect]
     Indication: ILL-DEFINED DISORDER
     Dosage: ORAL
     Route: 048
     Dates: start: 20050919, end: 20050921
  4. ALPRAZOLAM [Concomitant]
     Indication: ILL-DEFINED DISORDER
     Dosage: ORAL
     Route: 048
     Dates: start: 20050919, end: 20050921
  5. NITRAZEPAM [Suspect]
     Indication: ILL-DEFINED DISORDER
     Dosage: ORAL
     Route: 048
     Dates: start: 20050919, end: 20050921
  6. ZOLPIDEM TARTRATE [Suspect]
     Indication: ILL-DEFINED DISORDER
     Dosage: ORAL
     Route: 048
     Dates: start: 20050919, end: 20050921
  7. LUDIOMIL [Concomitant]
  8. TRYPTANOL 9AMITRIPTYLINE HYDROCHLORIDE) [Concomitant]
  9. DEPAKENE [Concomitant]

REACTIONS (5)
  - ACCIDENTAL EXPOSURE [None]
  - DIZZINESS [None]
  - DYSLALIA [None]
  - GAIT DISTURBANCE [None]
  - WRONG DRUG ADMINISTERED [None]
